FAERS Safety Report 21130243 (Version 2)
Quarter: 2022Q3

REPORT INFORMATION
  Report Type: Spontaneous
  Country: CA (occurrence: CA)
  Receive Date: 20220726
  Receipt Date: 20220831
  Transmission Date: 20221026
  Serious: Yes (Other)
  Sender: FDA-Public Use
  Company Number: CA-CELLTRION INC.-2022CA010526

PATIENT

DRUGS (5)
  1. INFLECTRA [Suspect]
     Active Substance: INFLIXIMAB-DYYB
     Indication: Crohn^s disease
     Dosage: 790 MG WEEKS (0,2,6 THEN EVERY 8 WEEKS)
     Route: 042
     Dates: start: 20220601, end: 20220601
  2. INFLECTRA [Suspect]
     Active Substance: INFLIXIMAB-DYYB
     Dosage: 790 MG WEEKS (0,2,6 THEN EVERY 8 WEEKS)
     Route: 042
     Dates: start: 20220615
  3. INFLECTRA [Suspect]
     Active Substance: INFLIXIMAB-DYYB
     Dosage: 10 MG/KG INDUCTION WEEK 2, 6 THEN MAINTENANCE EVERY 8 WEEKS. WEEK 0 AT HOSPITAL
     Route: 042
     Dates: start: 20220615
  4. INFLECTRA [Suspect]
     Active Substance: INFLIXIMAB-DYYB
     Dosage: 800 MG (PATIENT IS SUPPOSED TO RECEIVE 10 MG/KG)
     Route: 042
     Dates: start: 20220713
  5. PREDNISONE [Concomitant]
     Active Substance: PREDNISONE
     Dosage: 1 DF
     Route: 048
     Dates: start: 20220525

REACTIONS (4)
  - Weight increased [Not Recovered/Not Resolved]
  - Condition aggravated [Recovering/Resolving]
  - Incorrect dose administered [Unknown]
  - Off label use [Unknown]

NARRATIVE: CASE EVENT DATE: 20220615
